FAERS Safety Report 18327541 (Version 1)
Quarter: 2020Q3

REPORT INFORMATION
  Report Type: Spontaneous
  Country: GB (occurrence: GB)
  Receive Date: 20200929
  Receipt Date: 20200929
  Transmission Date: 20201103
  Serious: Yes (Life-Threatening, Hospitalization, Disabling, Other)
  Sender: FDA-Public Use
  Company Number: GB-JNJFOC-20200941887

PATIENT
  Age: 52 Year
  Sex: Female

DRUGS (1)
  1. XARELTO [Suspect]
     Active Substance: RIVAROXABAN
     Indication: DEEP VEIN THROMBOSIS
     Dosage: UNK
     Route: 048
     Dates: start: 20140918, end: 20160501

REACTIONS (7)
  - Renal failure [Unknown]
  - Malaise [Not Recovered/Not Resolved]
  - Sepsis [Unknown]
  - Systemic lupus erythematosus [Not Recovered/Not Resolved]
  - Sjogren^s syndrome [Not Recovered/Not Resolved]
  - Musculoskeletal stiffness [Unknown]
  - Joint stiffness [Unknown]

NARRATIVE: CASE EVENT DATE: 20141018
